FAERS Safety Report 8274158-0 (Version None)
Quarter: 2012Q2

REPORT INFORMATION
  Report Type: 
  Country: None (occurrence: None)
  Receive Date: 20120411
  Receipt Date: 20120326
  Transmission Date: 20120825
  Serious: Yes (Hospitalization)
  Sender: FDA-Public Use
  Company Number: ES-PFIZER INC-2012086236

PATIENT
  Age: 55 Year
  Sex: Male

DRUGS (6)
  1. DICLOFENAC [Suspect]
     Indication: PAIN
     Dosage: 500 MG, 1X/DAY
     Route: 048
     Dates: start: 20101020, end: 20111026
  2. ACETAMINOPHEN [Suspect]
     Indication: PAIN
     Dosage: 1 GAM DAILY
     Route: 048
     Dates: start: 20101004, end: 20111026
  3. KALETRA [Concomitant]
     Indication: HIV INFECTION
     Route: 048
     Dates: end: 20101026
  4. TRUVADA [Concomitant]
     Indication: HIV INFECTION
     Route: 048
     Dates: end: 20101026
  5. IBUPROFEN [Suspect]
     Indication: PAIN
     Dosage: 600 MG, 1X/DAY
     Route: 048
     Dates: start: 20101004, end: 20111026
  6. TRAMADOL HYDROCHLORIDE AND ACETAMINOPHEN [Suspect]
     Indication: PAIN
     Dosage: UNK, ONCE DAILY
     Route: 048
     Dates: start: 20101020, end: 20111026

REACTIONS (3)
  - JAUNDICE [None]
  - CHOLESTASIS [None]
  - ARTHRITIS BACTERIAL [None]
